FAERS Safety Report 5213758-9 (Version None)
Quarter: 2007Q1

REPORT INFORMATION
  Report Type: 
  Country: None (occurrence: None)
  Receive Date: 20070119
  Receipt Date: 20070108
  Transmission Date: 20070707
  Serious: Yes (Disabling)
  Sender: FDA-Public Use
  Company Number: GB-PFIZER INC-2006153778

PATIENT
  Age: 10 Year
  Sex: Female
  Weight: 38 kg

DRUGS (3)
  1. VORICONAZOLE [Suspect]
     Indication: BRONCHOPULMONARY ASPERGILLOSIS
     Route: 048
  2. ALL OTHER THERAPEUTIC PRODUCTS [Concomitant]
  3. CIPROFLOXACIN [Concomitant]
     Indication: PSEUDOMONAS INFECTION
     Route: 048

REACTIONS (2)
  - EPHELIDES [None]
  - ERYTHEMA [None]
